FAERS Safety Report 8691098 (Version 3)
Quarter: 2012Q4

REPORT INFORMATION
  Report Type: 
  Country: US (occurrence: US)
  Receive Date: 20120730
  Receipt Date: 20120921
  Transmission Date: 20130627
  Serious: Yes (Other)
  Sender: FDA-Public Use
  Company Number: US-BAYER-2012-073346

PATIENT
  Age: 55 Year
  Sex: Male
  Weight: 82.99 kg

DRUGS (2)
  1. SORAFENIB (RAF KINASE INHIBITOR) [Suspect]
     Indication: HEPATIC NEOPLASM MALIGNANT
     Dosage: 200 mg, BID
     Dates: start: 20120522, end: 20120717
  2. SORAFENIB (RAF KINASE INHIBITOR) [Suspect]
     Indication: HEPATIC NEOPLASM MALIGNANT
     Dosage: UNK
     Dates: start: 201204

REACTIONS (2)
  - Mental impairment [Recovering/Resolving]
  - Somnolence [Recovering/Resolving]
